FAERS Safety Report 4471442-3 (Version None)
Quarter: 2004Q4

REPORT INFORMATION
  Report Type: 
  Country: None (occurrence: None)
  Receive Date: 20041012
  Receipt Date: 20040625
  Transmission Date: 20050328
  Serious: Yes (Life-Threatening)
  Sender: FDA-Public Use
  Company Number: GB-BRISTOL-MYERS SQUIBB COMPANY-12626081

PATIENT
  Age: 43 Year
  Sex: Female

DRUGS (9)
  1. ABILIFY [Suspect]
     Indication: SCHIZOPHRENIA
     Route: 048
     Dates: start: 20040622, end: 20040623
  2. CALCICHEW D3 [Concomitant]
  3. EVENING PRIMROSE OIL [Concomitant]
  4. DIAZEPAM [Concomitant]
  5. PROCYCLIDINE HYDROCHLORIDE 2MG TAB [Concomitant]
  6. VENLAFAXINE HCL [Concomitant]
  7. RISPERIDONE [Concomitant]
  8. OLANZAPINE [Concomitant]
  9. CLOZAPINE [Concomitant]

REACTIONS (5)
  - DRY SKIN [None]
  - ERYTHEMA [None]
  - FACE OEDEMA [None]
  - FLUSHING [None]
  - PRURITUS [None]
